FAERS Safety Report 6168522-3 (Version None)
Quarter: 2009Q2

REPORT INFORMATION
  Report Type: 
  Country: None (occurrence: None)
  Receive Date: 20090427
  Receipt Date: 20090417
  Transmission Date: 20091009
  Serious: Yes (Hospitalization, Disabling, Other)
  Sender: FDA-Public Use
  Company Number: B0567412A

PATIENT
  Sex: Male
  Weight: 79 kg

DRUGS (1)
  1. MALARONE [Suspect]
     Indication: PROPHYLAXIS
     Dosage: 1TAB PER DAY
     Route: 048
     Dates: start: 20080401

REACTIONS (24)
  - ALLERGIC GRANULOMATOUS ANGIITIS [None]
  - ARTHRALGIA [None]
  - BLOOD ALBUMIN DECREASED [None]
  - CREPITATIONS [None]
  - EOSINOPHILIA [None]
  - FATIGUE [None]
  - HYPOAESTHESIA [None]
  - HYPOKINESIA [None]
  - ILL-DEFINED DISORDER [None]
  - JOINT EFFUSION [None]
  - JOINT SWELLING [None]
  - MICROSCOPIC POLYANGIITIS [None]
  - MUSCULOSKELETAL DISORDER [None]
  - NAIL DISORDER [None]
  - NIGHT SWEATS [None]
  - OEDEMA PERIPHERAL [None]
  - PAIN IN EXTREMITY [None]
  - PALLOR [None]
  - PYREXIA [None]
  - RASH ERYTHEMATOUS [None]
  - RENAL FAILURE [None]
  - SLEEP DISORDER [None]
  - VASCULITIS [None]
  - WEIGHT DECREASED [None]
